FAERS Safety Report 5393651-1 (Version None)
Quarter: 2007Q3

REPORT INFORMATION
  Report Type: 
  Country: None (occurrence: None)
  Receive Date: 20070719
  Receipt Date: 20070719
  Transmission Date: 20080115
  Serious: No
  Sender: FDA-Public Use
  Company Number: None

PATIENT
  Age: 29 Year
  Sex: Female
  Weight: 80.9 kg

DRUGS (10)
  1. SEROQUEL [Suspect]
     Indication: DEPRESSION
     Dosage: 50 MG TID + 150 MG QHS  (THERAPY DATES: PRIOR TO HOSPITALIZA THROUGH 7/11/07)
     Dates: end: 20070711
  2. SEROQUEL [Suspect]
     Indication: MOOD SWINGS
     Dosage: 50 MG TID + 150 MG QHS  (THERAPY DATES: PRIOR TO HOSPITALIZA THROUGH 7/11/07)
     Dates: end: 20070711
  3. CLONIDINE [Concomitant]
  4. MOTRIN [Concomitant]
  5. VALPROIC ACID [Concomitant]
  6. BENTYL [Concomitant]
  7. LORAZEPAM [Concomitant]
  8. FOLIC ACID [Concomitant]
  9. M.V.I. [Concomitant]
  10. TRAZODONE HCL [Concomitant]

REACTIONS (1)
  - SWOLLEN TONGUE [None]
